FAERS Safety Report 7225061-6 (Version None)
Quarter: 2011Q1

REPORT INFORMATION
  Report Type: 
  Country: None (occurrence: None)
  Receive Date: 20110107
  Receipt Date: 20110107
  Transmission Date: 20110831
  Serious: Yes (Other)
  Sender: FDA-Public Use
  Company Number: None

PATIENT
  Age: 9 Month
  Sex: Male
  Weight: 7.7111 kg

DRUGS (2)
  1. HOMEOPATHIC TEETHING TABLETS HYLANDS [Suspect]
     Indication: TEETHING
     Dosage: 2 TO 3 TABLETS UP TO 4 TIMES DAIL PO
     Route: 048
     Dates: start: 20100801, end: 20101001
  2. HOMEOPATHIC TEETHING TABLETS HYLANDS [Suspect]
     Indication: TEETHING
     Dosage: 2 TO 3 TABLETS UP TO 4 TIMES DAIL PO
     Route: 048
     Dates: start: 20100901, end: 20101101

REACTIONS (10)
  - ABDOMINAL PAIN [None]
  - SCREAMING [None]
  - FLATULENCE [None]
  - IRRITABILITY [None]
  - DISORIENTATION [None]
  - PAIN [None]
  - CRYING [None]
  - RESTLESSNESS [None]
  - RASH [None]
  - GASTROOESOPHAGEAL REFLUX DISEASE [None]
